FAERS Safety Report 19631862 (Version 1)
Quarter: 2021Q3

REPORT INFORMATION
  Report Type: Spontaneous
  Country: US (occurrence: US)
  Receive Date: 20210728
  Receipt Date: 20210728
  Transmission Date: 20211014
  Serious: No
  Sender: FDA-Public Use
  Company Number: US-ROCHE-2663814

PATIENT
  Sex: Female

DRUGS (1)
  1. XELODA [Suspect]
     Active Substance: CAPECITABINE
     Indication: BREAST CANCER
     Dosage: 2000 MG AM/1500 MG PM,  7 DAYS ON,THEN 7 DAYS OFF EVERY 14 DAYS,   ONGOING:YES
     Route: 048
     Dates: start: 20200818

REACTIONS (1)
  - Hypoaesthesia oral [Unknown]
